FAERS Safety Report 21440921 (Version 1)
Quarter: 2022Q4

REPORT INFORMATION
  Report Type: Spontaneous
  Country: US (occurrence: None)
  Receive Date: 20221010
  Receipt Date: 20221010
  Transmission Date: 20230113
  Serious: Yes (Other)
  Sender: FDA-Public Use
  Company Number: None

PATIENT
  Age: 60 Year
  Sex: Female
  Weight: 139.5 kg

DRUGS (1)
  1. OZEMPIC [Suspect]
     Active Substance: SEMAGLUTIDE
     Indication: Product used for unknown indication
     Dosage: OTHER FREQUENCY : WEEKLY;?
     Dates: start: 20221001, end: 20221001

REACTIONS (2)
  - Vulvovaginal pruritus [None]
  - Palpitations [None]

NARRATIVE: CASE EVENT DATE: 20221001
